FAERS Safety Report 9022629 (Version 1)
Quarter: 2013Q1

REPORT INFORMATION
  Report Type: Spontaneous
  Country: US (occurrence: US)
  Receive Date: 20130120
  Receipt Date: 20130120
  Transmission Date: 20140127
  Serious: No
  Sender: FDA-Public Use
  Company Number: US-009507513-1301USA008541

PATIENT
  Age: 51 Year
  Sex: Male

DRUGS (10)
  1. JANUMET [Suspect]
     Indication: TYPE 2 DIABETES MELLITUS
     Dosage: 50MG/1000MG, BID
     Route: 048
  2. NORTRIPTYLINE [Concomitant]
  3. HYDROCODONE [Concomitant]
  4. SOMA [Concomitant]
  5. POTASSIUM CITRATE [Concomitant]
  6. LOVAZA [Concomitant]
  7. GLYBURIDE [Concomitant]
  8. AMLODIPINE [Concomitant]
  9. HYDROCHLOROTHIAZIDE [Concomitant]
  10. MICARDIS [Concomitant]

REACTIONS (2)
  - Nausea [Not Recovered/Not Resolved]
  - Vomiting [Not Recovered/Not Resolved]
